FAERS Safety Report 8979400 (Version 1)
Quarter: 2012Q4

REPORT INFORMATION
  Report Type: Report from Study
  Country: BE (occurrence: BE)
  Receive Date: 20121221
  Receipt Date: 20121221
  Transmission Date: 20130627
  Serious: Yes (Death, Hospitalization)
  Sender: FDA-Public Use
  Company Number: BE-PFIZER INC-2012320748

PATIENT
  Age: 49 Year
  Sex: Male
  Weight: 85 kg

DRUGS (8)
  1. MEDROL [Suspect]
     Dosage: 32 Y, daily
     Dates: start: 20100714
  2. OXALIPLATIN [Suspect]
     Indication: COLORECTAL CANCER
     Dosage: 130 mg/m2, every 3 weeks
     Route: 042
     Dates: start: 20091119, end: 20100708
  3. AVASTIN [Suspect]
     Indication: COLORECTAL CANCER
     Dosage: 7.5 mg/kg, every 3 weeks
     Route: 042
     Dates: start: 20091119, end: 20100708
  4. XELODA [Suspect]
     Indication: COLORECTAL CANCER
     Dosage: 2 x 1000 mg/m2,  daily D1-D14
     Route: 048
     Dates: start: 20091119, end: 20100708
  5. BEFACT FORTE [Concomitant]
     Dosage: UNK
     Dates: start: 20100307, end: 20100715
  6. KEPPRA [Concomitant]
     Dosage: UNK
     Dates: start: 20100710, end: 20100807
  7. OMEPRAZOLE [Concomitant]
     Dosage: 20 mg, 2x/day
     Dates: start: 20091214
  8. DAFALGAN [Concomitant]
     Dosage: as needed
     Dates: start: 20100524

REACTIONS (2)
  - Epilepsy [Fatal]
  - Hiccups [Fatal]
